FAERS Safety Report 24095178 (Version 1)
Quarter: 2024Q3

REPORT INFORMATION
  Report Type: Spontaneous
  Country: US (occurrence: US)
  Receive Date: 20240716
  Receipt Date: 20240716
  Transmission Date: 20241016
  Serious: Yes (Other)
  Sender: ROCHE
  Company Number: US-ROCHE-3573468

PATIENT
  Age: 24 Year
  Sex: Male
  Weight: 95.34 kg

DRUGS (5)
  1. XOLAIR [Suspect]
     Active Substance: OMALIZUMAB
     Indication: Blood immunoglobulin E increased
     Dosage: 300 MG, Q 10 W (2 OF 150MG PRE-FILLED SYRINGES)
     Route: 058
  2. XOLAIR [Suspect]
     Active Substance: OMALIZUMAB
     Indication: Idiopathic urticaria
     Route: 058
  3. ALBUTEROL SULFATE [Concomitant]
     Active Substance: ALBUTEROL SULFATE
     Indication: Asthma
     Dosage: 108 UG (2 PUFFS AS NEEDED  FORMULATION-RESCUE INHALER)
  4. FLUTICASONE [Concomitant]
     Active Substance: FLUTICASONE
     Indication: Seasonal allergy
     Dosage: 50 UG (FORMULATION- NASAL SPRAY)
  5. EPIPEN [Concomitant]
     Active Substance: EPINEPHRINE
     Indication: Anaphylactic reaction
     Dosage: UNK, PRN (AS NEEDED)

REACTIONS (6)
  - Wrong technique in product usage process [Unknown]
  - Underdose [Unknown]
  - Device defective [Unknown]
  - Off label use [Unknown]
  - Needle issue [Unknown]
  - No adverse event [Unknown]

NARRATIVE: CASE EVENT DATE: 20240519
